FAERS Safety Report 9253396 (Version 3)
Quarter: 2013Q4

REPORT INFORMATION
  Report Type: Spontaneous
  Country: US (occurrence: US)
  Receive Date: 20130425
  Receipt Date: 20131121
  Transmission Date: 20140711
  Serious: Yes (Hospitalization)
  Sender: FDA-Public Use
  Company Number: US-ASTRAZENECA-2013SE27352

PATIENT
  Age: 54 Year
  Sex: Female

DRUGS (6)
  1. NEXIUM [Suspect]
     Indication: GASTRIC DISORDER
     Route: 048
     Dates: start: 20080304, end: 2011
  2. NEXIUM [Suspect]
     Indication: GASTROOESOPHAGEAL REFLUX DISEASE
     Route: 048
     Dates: start: 20080304, end: 2011
  3. PREVACID [Concomitant]
  4. ZANTAC [Concomitant]
     Indication: GASTROOESOPHAGEAL REFLUX DISEASE
     Dosage: AS NEEDED
     Dates: start: 2011
  5. ROLAIDS [Concomitant]
     Indication: GASTROOESOPHAGEAL REFLUX DISEASE
     Dosage: 1-2 PER DAY
  6. ZYPREXA [Concomitant]

REACTIONS (12)
  - Hernia [Unknown]
  - Osteoporosis [Unknown]
  - Bone disorder [Unknown]
  - Multiple fractures [Unknown]
  - Upper limb fracture [Unknown]
  - Pain in extremity [Unknown]
  - Arthritis [Unknown]
  - Calcium deficiency [Unknown]
  - Cataract [Unknown]
  - Rheumatoid arthritis [Unknown]
  - Fall [Unknown]
  - Arthralgia [Unknown]
